FAERS Safety Report 8921199 (Version 1)
Quarter: 2012Q4

REPORT INFORMATION
  Report Type: 
  Country: IT (occurrence: IT)
  Receive Date: 20121123
  Receipt Date: 20121123
  Transmission Date: 20130627
  Serious: Yes (Other)
  Sender: FDA-Public Use
  Company Number: IT-SANOFI-AVENTIS-2012SA082913

PATIENT
  Sex: Male

DRUGS (1)
  1. LANTUS [Suspect]
     Indication: DIABETES
     Dosage: dose frequency-in the evening
     Route: 058

REACTIONS (6)
  - Epilepsy [Recovering/Resolving]
  - Condition aggravated [Unknown]
  - Cardiac failure [Recovering/Resolving]
  - Torsade de pointes [Recovering/Resolving]
  - Pneumonia [Recovering/Resolving]
  - Blood glucose fluctuation [Recovering/Resolving]
